FAERS Safety Report 15218639 (Version 1)
Quarter: 2018Q3

REPORT INFORMATION
  Report Type: Spontaneous
  Country: US (occurrence: US)
  Receive Date: 20180731
  Receipt Date: 20180731
  Transmission Date: 20181010
  Serious: No
  Sender: FDA-Public Use
  Company Number: US-ACCORD-068396

PATIENT
  Age: 87 Year
  Sex: Female

DRUGS (1)
  1. AMITRIPTYLINE [Suspect]
     Active Substance: AMITRIPTYLINE
     Indication: PRODUCT USED FOR UNKNOWN INDICATION
     Dosage: STRENGTH: 10 MG?DOSE: 2 TABLETS WITH BREAKFAST, 2 TABLETS WITH LUNCH, 4 TABLETS AT BEDTIME
     Route: 048
     Dates: start: 20180403

REACTIONS (1)
  - Drug level changed [Unknown]
